FAERS Safety Report 6288247-3 (Version None)
Quarter: 2009Q3

REPORT INFORMATION
  Report Type: 
  Country: None (occurrence: None)
  Receive Date: 20090727
  Receipt Date: 20090727
  Transmission Date: 20100115
  Serious: No
  Sender: FDA-Public Use
  Company Number: None

PATIENT
  Age: 45 Year
  Sex: Female
  Weight: 47.6277 kg

DRUGS (2)
  1. ENBREL [Suspect]
     Indication: KERATOSIS FOLLICULAR
     Dosage: 50MG 2 TIMES PER WEEK
     Dates: start: 20030301, end: 20031101
  2. ENBREL [Suspect]
     Indication: KERATOSIS FOLLICULAR
     Dosage: 50MG 2 TIMES PER WEEK
     Dates: start: 20070201, end: 20080601

REACTIONS (4)
  - ALOPECIA SCARRING [None]
  - CUTANEOUS LUPUS ERYTHEMATOSUS [None]
  - LICHEN PLANUS [None]
  - SYSTEMIC LUPUS ERYTHEMATOSUS [None]
